FAERS Safety Report 5171531-4 (Version None)
Quarter: 2006Q4

REPORT INFORMATION
  Report Type: 
  Country: None (occurrence: None)
  Receive Date: 20061205
  Receipt Date: 20061122
  Transmission Date: 20070319
  Serious: Yes (Hospitalization)
  Sender: FDA-Public Use
  Company Number: 163-21880-06110160

PATIENT
  Age: 67 Year
  Sex: Female

DRUGS (1)
  1. REVLIMID [Suspect]
     Indication: MULTIPLE MYELOMA
     Dosage: 5 MG, X21 DAYS THEN 7 DAYS OFF, ORAL
     Route: 048

REACTIONS (5)
  - DRY SKIN [None]
  - FATIGUE [None]
  - MALAISE [None]
  - PNEUMONIA [None]
  - URINARY TRACT INFECTION [None]
